FAERS Safety Report 7085009-4 (Version None)
Quarter: 2010Q4

REPORT INFORMATION
  Report Type: 
  Country: None (occurrence: None)
  Receive Date: 20101027
  Receipt Date: 20101015
  Transmission Date: 20110411
  Serious: Yes (Hospitalization)
  Sender: FDA-Public Use
  Company Number: WAES 1008USA00507

PATIENT
  Age: 4 Year
  Sex: Female

DRUGS (8)
  1. ISENTRESS [Suspect]
     Indication: HIV INFECTION
     Dosage: 100 MG/BID, PO
     Route: 048
     Dates: start: 20100714
  2. EFAVIRENZ [Suspect]
     Indication: PRODUCT USED FOR UNKNOWN INDICATION
     Dosage: 250 MG/HS, PO
     Route: 048
     Dates: start: 20100714
  3. ABACAVIR SULFATE [Concomitant]
  4. DIDANOSINE [Concomitant]
  5. FOLIC ACID [Concomitant]
  6. LAMIVUDINE [Concomitant]
  7. SULFAMETHOXAZOLE AND TRIMETHOPRIM [Concomitant]
  8. VITAMINS(UNSPECIFIED) [Concomitant]

REACTIONS (8)
  - ADENOVIRUS INFECTION [None]
  - DERMATITIS ALLERGIC [None]
  - HEPATOMEGALY [None]
  - MEASLES [None]
  - RASH MACULO-PAPULAR [None]
  - RASH PRURITIC [None]
  - RUBELLA [None]
  - VIRAL RASH [None]
